FAERS Safety Report 15969383 (Version 2)
Quarter: 2019Q1

REPORT INFORMATION
  Report Type: Spontaneous
  Country: US (occurrence: US)
  Receive Date: 20190215
  Receipt Date: 20190215
  Transmission Date: 20190418
  Serious: Yes (Other)
  Sender: FDA-Public Use
  Company Number: PHEH2019US006812

PATIENT
  Sex: Male

DRUGS (1)
  1. TASIGNA [Suspect]
     Active Substance: NILOTINIB
     Indication: CHRONIC MYELOID LEUKAEMIA
     Dosage: UNK UNK, QD
     Route: 048
     Dates: start: 2006

REACTIONS (5)
  - Diabetes mellitus [Unknown]
  - Hypogonadism male [Unknown]
  - Hyponatraemia [Unknown]
  - Amnesia [Unknown]
  - Neutropenia [Unknown]

NARRATIVE: CASE EVENT DATE: 2009
